FAERS Safety Report 7636084-7 (Version None)
Quarter: 2011Q3

REPORT INFORMATION
  Report Type: 
  Country: None (occurrence: None)
  Receive Date: 20110726
  Receipt Date: 20110718
  Transmission Date: 20111222
  Serious: Yes (Hospitalization)
  Sender: FDA-Public Use
  Company Number: FR-ROCHE-790892

PATIENT
  Sex: Female

DRUGS (5)
  1. AVASTIN [Suspect]
     Indication: COLON CANCER
     Dosage: FREQUENCY: EACH CYCLE
     Route: 042
     Dates: start: 20110512
  2. OXALIPLATIN [Suspect]
     Indication: COLON CANCER
     Route: 042
     Dates: start: 20110512
  3. FOLFOX REGIMEN [Concomitant]
  4. XELODA [Suspect]
     Indication: COLON CANCER
     Route: 048
     Dates: start: 20110512, end: 20110525
  5. OMEPRAZOLE [Concomitant]

REACTIONS (3)
  - LEUKOPENIA [None]
  - RENAL FAILURE ACUTE [None]
  - HYPERGLYCAEMIA [None]
